FAERS Safety Report 14438587 (Version 8)
Quarter: 2018Q2

REPORT INFORMATION
  Report Type: Report from Study
  Country: CA (occurrence: CA)
  Receive Date: 20180125
  Receipt Date: 20180423
  Transmission Date: 20180711
  Serious: Yes (Hospitalization)
  Sender: FDA-Public Use
  Company Number: PHHY2017CA116099

PATIENT
  Age: 85 Year
  Sex: Female

DRUGS (5)
  1. SANDOSTATIN LAR DEPOT [Suspect]
     Active Substance: OCTREOTIDE ACETATE
     Indication: CARCINOID TUMOUR
     Dosage: 20 MG, Q3W (EVERY 3 WEEKS)
     Route: 030
     Dates: start: 20170707
  2. BISOPROLOL [Concomitant]
     Active Substance: BISOPROLOL
     Indication: CARDIAC DISORDER
     Dosage: UNK
     Route: 065
  3. HYDROCHLOROTHIAZIDE. [Concomitant]
     Active Substance: HYDROCHLOROTHIAZIDE
     Indication: CARDIAC DISORDER
     Dosage: UNK
     Route: 065
  4. IRBESARTAN. [Suspect]
     Active Substance: IRBESARTAN
     Indication: PRODUCT USED FOR UNKNOWN INDICATION
     Dosage: UNK
     Route: 065
  5. APIXABAN [Concomitant]
     Active Substance: APIXABAN
     Indication: CARDIAC DISORDER
     Dosage: UNK
     Route: 065

REACTIONS (12)
  - Blood pressure increased [Unknown]
  - Inappropriate schedule of drug administration [Unknown]
  - Malaise [Unknown]
  - Blood pressure systolic increased [Unknown]
  - Anxiety [Unknown]
  - Blood potassium decreased [Unknown]
  - Blood magnesium decreased [Unknown]
  - Heart rate irregular [Unknown]
  - Contusion [Unknown]
  - Injection site pain [Unknown]
  - Fatigue [Unknown]
  - Fall [Unknown]

NARRATIVE: CASE EVENT DATE: 20170803
